FAERS Safety Report 4571179-6 (Version None)
Quarter: 2005Q1

REPORT INFORMATION
  Report Type: 
  Country: None (occurrence: None)
  Receive Date: 20050202
  Receipt Date: 20050119
  Transmission Date: 20050727
  Serious: Yes (Other)
  Sender: FDA-Public Use
  Company Number: GBS050116437

PATIENT
  Age: 29 Year
  Sex: Female

DRUGS (1)
  1. FLUOXETINE [Suspect]

REACTIONS (4)
  - ABNORMAL BEHAVIOUR [None]
  - DISSOCIATION [None]
  - HYPOAESTHESIA [None]
  - SUICIDAL IDEATION [None]
